APPROVED DRUG PRODUCT: FUROSEMIDE
Active Ingredient: FUROSEMIDE
Strength: 10MG/ML
Dosage Form/Route: INJECTABLE;INJECTION
Application: A218188 | Product #001 | TE Code: AP
Applicant: MICRO LABS LTD
Approved: Jan 8, 2026 | RLD: No | RS: No | Type: RX